FAERS Safety Report 16440972 (Version 1)
Quarter: 2019Q2

REPORT INFORMATION
  Report Type: Report from Study
  Country: US (occurrence: US)
  Receive Date: 20190617
  Receipt Date: 20190617
  Transmission Date: 20190711
  Serious: Yes (Other)
  Sender: FDA-Public Use
  Company Number: US-BAYER-2019-112068

PATIENT
  Sex: Male

DRUGS (4)
  1. HEPARIN [Suspect]
     Active Substance: HEPARIN SODIUM
  2. WARFARIN [Suspect]
     Active Substance: WARFARIN
  3. ASPIRIN. [Suspect]
     Active Substance: ASPIRIN
  4. DIPYRIDAMOLE. [Suspect]
     Active Substance: DIPYRIDAMOLE

REACTIONS (2)
  - Labelled drug-drug interaction medication error [None]
  - Gastrointestinal haemorrhage [None]
